FAERS Safety Report 17635835 (Version 10)
Quarter: 2020Q3

REPORT INFORMATION
  Report Type: Report from Study
  Country: US (occurrence: US)
  Receive Date: 20200407
  Receipt Date: 20200801
  Transmission Date: 20201102
  Serious: No
  Sender: FDA-Public Use
  Company Number: NVSC2020US083833

PATIENT
  Age: 79 Year
  Sex: Male

DRUGS (3)
  1. ENTRESTO [Suspect]
     Active Substance: SACUBITRIL\VALSARTAN
     Dosage: 49.51 MG, BID
     Route: 048
     Dates: start: 2019
  2. ENTRESTO [Suspect]
     Active Substance: SACUBITRIL\VALSARTAN
     Dosage: 100 MG (49/51), BID
     Route: 048
  3. ENTRESTO [Suspect]
     Active Substance: SACUBITRIL\VALSARTAN
     Indication: CARDIAC FAILURE
     Dosage: 50 MG(24.26 MG), BID
     Route: 048
     Dates: start: 2019

REACTIONS (7)
  - Weight increased [Unknown]
  - Photosensitivity reaction [Unknown]
  - Hypertension [Unknown]
  - Pollakiuria [Unknown]
  - Weight fluctuation [Unknown]
  - Sunburn [Recovered/Resolved]
  - Cough [Unknown]

NARRATIVE: CASE EVENT DATE: 202003
